FAERS Safety Report 7667902-4 (Version None)
Quarter: 2011Q3

REPORT INFORMATION
  Report Type: 
  Country: None (occurrence: None)
  Receive Date: 20110808
  Receipt Date: 20110728
  Transmission Date: 20111222
  Serious: Yes (Hospitalization, Other)
  Sender: FDA-Public Use
  Company Number: FR-AMGEN-FRASP2011026516

PATIENT
  Age: 52 Year
  Sex: Female

DRUGS (5)
  1. ENBREL [Suspect]
     Indication: PSORIATIC ARTHROPATHY
     Dosage: 50 MG, WEEKLY
     Route: 058
     Dates: start: 20091201, end: 20110323
  2. METHOTREXATE SODIUM [Suspect]
     Dosage: 6 DF, WEEKLY
     Route: 048
     Dates: start: 20080101
  3. LAMALINE                           /00764901/ [Concomitant]
     Dosage: UNK, AS NEEDED
  4. FOLIC ACID [Concomitant]
     Dosage: UNK
  5. LEVOTHYROXINE SODIUM [Concomitant]
     Dosage: 100 UNK, 1X/DAY

REACTIONS (3)
  - PERIPHERAL SENSORY NEUROPATHY [None]
  - RHEUMATOID ARTHRITIS [None]
  - RESTLESS LEGS SYNDROME [None]
